FAERS Safety Report 19237358 (Version 1)
Quarter: 2021Q2

REPORT INFORMATION
  Report Type: Report from Study
  Country: EG (occurrence: EG)
  Receive Date: 20210510
  Receipt Date: 20210510
  Transmission Date: 20210717
  Serious: Yes (Other)
  Sender: FDA-Public Use
  Company Number: NVSC2021EG095460

PATIENT
  Age: 34 Year
  Sex: Female

DRUGS (12)
  1. CAL MAG [Concomitant]
     Indication: PRODUCT USED FOR UNKNOWN INDICATION
     Dosage: 1 DF, QD,8 YEARS AGO TO ONGOING
     Route: 065
  2. SYMBICORT [Concomitant]
     Active Substance: BUDESONIDE\FORMOTEROL FUMARATE DIHYDRATE
     Indication: ASTHMA
  3. FLIXONASE [Concomitant]
     Active Substance: FLUTICASONE PROPIONATE
     Indication: ALLERGIC BRONCHITIS
     Dosage: UNK UNK, QD
     Route: 065
  4. SYMBICORT [Concomitant]
     Active Substance: BUDESONIDE\FORMOTEROL FUMARATE DIHYDRATE
     Indication: COVID-19
  5. FLIXONASE [Concomitant]
     Active Substance: FLUTICASONE PROPIONATE
     Indication: COVID-19
  6. LEVCET [Concomitant]
     Indication: ASTHMA
  7. SYMBICORT [Concomitant]
     Active Substance: BUDESONIDE\FORMOTEROL FUMARATE DIHYDRATE
     Indication: ALLERGIC BRONCHITIS
     Dosage: UNK UNK, QD
     Route: 065
  8. FLIXONASE [Concomitant]
     Active Substance: FLUTICASONE PROPIONATE
     Indication: ASTHMA
  9. LEVCET [Concomitant]
     Indication: ALLERGIC BRONCHITIS
     Dosage: UNK UNK, QD
     Route: 065
  10. GLIVEC [Suspect]
     Active Substance: IMATINIB MESYLATE
     Indication: CHRONIC MYELOID LEUKAEMIA
     Dosage: 9 YEARS AGO, 1 TAB QD
     Route: 065
  11. GLIVEC [Suspect]
     Active Substance: IMATINIB MESYLATE
     Dosage: UNK
     Route: 065
  12. LEVCET [Concomitant]
     Indication: COVID-19

REACTIONS (20)
  - Blood pressure increased [Recovering/Resolving]
  - Dyspepsia [Recovering/Resolving]
  - Diarrhoea [Recovering/Resolving]
  - Dyspnoea [Recovering/Resolving]
  - Decreased immune responsiveness [Recovered/Resolved]
  - COVID-19 [Recovering/Resolving]
  - Bone pain [Recovering/Resolving]
  - Abdominal rigidity [Recovering/Resolving]
  - Product dose omission issue [Recovered/Resolved]
  - Pyrexia [Recovering/Resolving]
  - Cardiac disorder [Not Recovered/Not Resolved]
  - Arrhythmia [Not Recovered/Not Resolved]
  - Lung disorder [Recovering/Resolving]
  - White blood cell count increased [Recovered/Resolved]
  - Electrolyte imbalance [Not Recovered/Not Resolved]
  - Allergic bronchitis [Recovering/Resolving]
  - Anaemia [Recovering/Resolving]
  - Gastrointestinal disorder [Recovering/Resolving]
  - Balance disorder [Recovering/Resolving]
  - Myocardial infarction [Not Recovered/Not Resolved]

NARRATIVE: CASE EVENT DATE: 202104
